FAERS Safety Report 19160599 (Version 1)
Quarter: 2021Q2

REPORT INFORMATION
  Report Type: Report from Study
  Country: US (occurrence: US)
  Receive Date: 20210420
  Receipt Date: 20210420
  Transmission Date: 20210717
  Serious: Yes (Other)
  Sender: FDA-Public Use
  Company Number: US-HORIZON THERAPEUTICS-HZN-2021-001742

PATIENT

DRUGS (2)
  1. TEPROTUMUMAB?TRBW [Suspect]
     Active Substance: TEPROTUMUMAB-TRBW
     Dosage: UNK, 7TH INFUSION
     Route: 065
     Dates: start: 20210224
  2. TEPROTUMUMAB?TRBW [Suspect]
     Active Substance: TEPROTUMUMAB-TRBW
     Indication: PRODUCT USED FOR UNKNOWN INDICATION
     Dosage: UNK, 1ST INFUSION
     Route: 065
     Dates: start: 20201021

REACTIONS (4)
  - Anal fissure [Unknown]
  - Inflammatory bowel disease [Unknown]
  - Nausea [Unknown]
  - Constipation [Unknown]
